FAERS Safety Report 14455245 (Version 1)
Quarter: 2018Q1

REPORT INFORMATION
  Report Type: Spontaneous
  Country: JP (occurrence: JP)
  Receive Date: 20180129
  Receipt Date: 20180129
  Transmission Date: 20180509
  Serious: Yes (Other)
  Sender: FDA-Public Use
  Company Number: PHJP2018JP001730

PATIENT
  Age: 65 Year
  Sex: Female

DRUGS (4)
  1. SEROQUEL [Concomitant]
     Active Substance: QUETIAPINE FUMARATE
     Indication: PRODUCT USED FOR UNKNOWN INDICATION
     Dosage: UNK
     Route: 065
  2. ARICEPT [Concomitant]
     Active Substance: DONEPEZIL HYDROCHLORIDE
     Indication: DEMENTIA WITH LEWY BODIES
     Dosage: UNK
     Route: 065
  3. STALEVO [Suspect]
     Active Substance: CARBIDOPA\ENTACAPONE\LEVODOPA
     Indication: PARKINSON^S DISEASE
     Dosage: STALEVO L100:  MORNING, NOON, EVENING AND AT BEDTIME/STALEVO L50: 10AM AND 2PM, 6 TIMES A DAY
     Route: 048
  4. COMTAN [Suspect]
     Active Substance: ENTACAPONE
     Indication: PARKINSON^S DISEASE
     Dosage: 100 MG, QID
     Route: 048

REACTIONS (6)
  - Dyskinesia [Unknown]
  - Somnolence [Unknown]
  - Wrong technique in product usage process [Unknown]
  - Seizure [Unknown]
  - Dysphagia [Unknown]
  - Fall [Unknown]
